FAERS Safety Report 5321625-5 (Version None)
Quarter: 2007Q2

REPORT INFORMATION
  Report Type: 
  Country: None (occurrence: None)
  Receive Date: 20070510
  Receipt Date: 20070502
  Transmission Date: 20071010
  Serious: Yes (Disabling, Other)
  Sender: FDA-Public Use
  Company Number: B0434161A

PATIENT
  Age: 60 Year
  Sex: Male

DRUGS (13)
  1. NIQUITIN CQ 21MG [Suspect]
     Route: 062
     Dates: start: 20060419
  2. NIQUITIN CQ 14MG [Suspect]
     Route: 062
     Dates: end: 20060526
  3. NICOTINELL PATCH [Suspect]
     Dosage: 15MG UNKNOWN
     Route: 062
     Dates: start: 20060315, end: 20060419
  4. BECLOMETHASONE DIPROPIONATE [Concomitant]
     Indication: ASTHMA
     Route: 055
     Dates: start: 20041208
  5. ISOSORBIDE MONONITRATE [Concomitant]
     Dosage: 50MG PER DAY
     Route: 065
     Dates: start: 20060626
  6. ASPIRIN [Concomitant]
     Route: 065
  7. ATORVASTATIN CALCIUM [Concomitant]
     Dosage: 10MG PER DAY
     Route: 065
     Dates: start: 20050522
  8. CACIT [Concomitant]
     Indication: OSTEOPOROSIS
     Route: 048
     Dates: start: 20040402
  9. NITROLINGUAL [Concomitant]
     Dates: start: 20040425
  10. PREDNISOLONE [Concomitant]
     Indication: ASTHMA
     Route: 055
     Dates: start: 20041208
  11. SALMETEROL [Concomitant]
     Indication: ASTHMA
     Route: 055
     Dates: start: 20060308
  12. VENTOLIN [Concomitant]
     Indication: ASTHMA
     Route: 055
     Dates: start: 20060622
  13. UNKNOWN [Concomitant]
     Dates: start: 20060626

REACTIONS (3)
  - HYPERAESTHESIA [None]
  - INFLAMMATION [None]
  - SKIN HYPERTROPHY [None]
